FAERS Safety Report 4503209-1 (Version None)
Quarter: 2004Q4

REPORT INFORMATION
  Report Type: 
  Country: None (occurrence: None)
  Receive Date: 20041117
  Receipt Date: 20041110
  Transmission Date: 20050328
  Serious: Yes (Disabling)
  Sender: FDA-Public Use
  Company Number: US-MERCK-0411USA02019

PATIENT
  Age: 47 Year
  Sex: Female

DRUGS (5)
  1. VIOXX [Suspect]
     Indication: ARTHRITIS
     Route: 048
     Dates: start: 20040517
  2. BISOPROLOL [Concomitant]
     Route: 065
  3. DIOVAN [Concomitant]
     Route: 065
  4. LOTREL [Concomitant]
     Route: 065
  5. METFORMIN [Concomitant]
     Route: 065

REACTIONS (2)
  - DIABETES MELLITUS [None]
  - PAIN IN EXTREMITY [None]
